FAERS Safety Report 7156539-1 (Version None)
Quarter: 2010Q4

REPORT INFORMATION
  Report Type: 
  Country: None (occurrence: None)
  Receive Date: 20101214
  Receipt Date: 20091118
  Transmission Date: 20110411
  Serious: No
  Sender: FDA-Public Use
  Company Number: US-ASTRAZENECA-2009SE27634

PATIENT
  Sex: Male

DRUGS (5)
  1. CRESTOR [Suspect]
     Route: 048
     Dates: end: 20091101
  2. NIACIN [Concomitant]
  3. FISH OIL [Concomitant]
  4. TRICOR [Concomitant]
  5. BENZAPRIL [Concomitant]

REACTIONS (2)
  - MYALGIA [None]
  - NEURALGIA [None]
